FAERS Safety Report 14516935 (Version 1)
Quarter: 2018Q1

REPORT INFORMATION
  Report Type: Spontaneous
  Country: US (occurrence: US)
  Receive Date: 20180212
  Receipt Date: 20180212
  Transmission Date: 20180509
  Serious: No
  Sender: FDA-Public Use
  Company Number: US-ASTRAZENECA-2018SE09718

PATIENT
  Sex: Female
  Weight: 70.3 kg

DRUGS (4)
  1. BABY ASPIRIN [Concomitant]
     Active Substance: ASPIRIN
     Indication: STENT PLACEMENT
     Route: 065
     Dates: start: 201707
  2. BRILINTA [Suspect]
     Active Substance: TICAGRELOR
     Indication: STENT PLACEMENT
     Dosage: TWICE DAILY
     Route: 048
     Dates: start: 201707
  3. LISINOPRIL. [Suspect]
     Active Substance: LISINOPRIL
     Indication: DIZZINESS
     Dosage: DAILY
     Route: 048
     Dates: start: 201708
  4. LISINOPRIL. [Suspect]
     Active Substance: LISINOPRIL
     Indication: HYPERTENSION
     Dosage: DAILY
     Route: 048
     Dates: start: 201708

REACTIONS (3)
  - Contusion [Unknown]
  - Dizziness [Unknown]
  - Hypertension [Unknown]
